FAERS Safety Report 8067980-7 (Version None)
Quarter: 2012Q1

REPORT INFORMATION
  Report Type: 
  Country: None (occurrence: None)
  Receive Date: 20120124
  Receipt Date: 20110902
  Transmission Date: 20120608
  Serious: No
  Sender: FDA-Public Use
  Company Number: US-AMGEN-USASP2011045335

PATIENT
  Sex: Female

DRUGS (10)
  1. FEMARA [Concomitant]
  2. XGEVA [Suspect]
     Indication: METASTASES TO BONE
     Dosage: UNK
     Dates: start: 20110101
  3. LISINOPRIL [Concomitant]
  4. WELLBUTRIN [Concomitant]
  5. ASPIRIN [Concomitant]
     Dosage: UNK
  6. XANAX [Concomitant]
  7. BUSPAR [Concomitant]
  8. VITAMIN D [Concomitant]
  9. TOPROL-XL [Concomitant]
  10. ADVICOR [Concomitant]

REACTIONS (3)
  - INFLUENZA [None]
  - ASTHENIA [None]
  - PAIN [None]
